FAERS Safety Report 5312063-X (Version None)
Quarter: 2007Q2

REPORT INFORMATION
  Report Type: 
  Country: None (occurrence: None)
  Receive Date: 20070430
  Receipt Date: 20060517
  Transmission Date: 20071010
  Serious: No
  Sender: FDA-Public Use
  Company Number: 2006UW09681

PATIENT
  Age: 73 Year
  Sex: Female
  Weight: 90.7 kg

DRUGS (5)
  1. NEXIUM [Suspect]
     Indication: GASTROOESOPHAGEAL REFLUX DISEASE
     Route: 048
     Dates: start: 20060401, end: 20060501
  2. DIOVAN [Concomitant]
  3. CARDIZEM [Concomitant]
  4. LIPITOR [Concomitant]
  5. SYNTHROID [Concomitant]

REACTIONS (2)
  - PAIN [None]
  - RASH MACULAR [None]
